FAERS Safety Report 5897679-4 (Version None)
Quarter: 2008Q3

REPORT INFORMATION
  Report Type: 
  Country: None (occurrence: None)
  Receive Date: 20080908
  Receipt Date: 20071129
  Transmission Date: 20090109
  Serious: Yes (Other)
  Sender: FDA-Public Use
  Company Number: 056 07-056

PATIENT
  Age: 78 Year
  Sex: Male

DRUGS (20)
  1. PREDNISONE [Suspect]
     Indication: BRONCHITIS
     Dosage: 40MG PER DAY
  2. GLIMEPIRIDE [Concomitant]
  3. DECADON [Concomitant]
  4. ACTOS [Concomitant]
  5. LANTUS [Concomitant]
  6. CALAN [Concomitant]
  7. ADVAIR DISKUS 100/50 [Concomitant]
  8. PREDNISONE TAB [Concomitant]
  9. POTASSIUM CHLORIDE [Concomitant]
  10. TYLENOL (CAPLET) [Concomitant]
  11. VITAMIN C+B [Concomitant]
  12. PROTONIX [Concomitant]
  13. MIRALAX [Concomitant]
  14. LIPITOR [Concomitant]
  15. FUROSEMIDE [Concomitant]
  16. COUMADIN [Concomitant]
  17. CELEBREX [Concomitant]
  18. SINGULAIR [Concomitant]
  19. LORATADINE [Concomitant]
  20. MULTI-VITAMIN [Concomitant]

REACTIONS (1)
  - BLOOD GLUCOSE INCREASED [None]
